FAERS Safety Report 8476035-9 (Version None)
Quarter: 2012Q2

REPORT INFORMATION
  Report Type: 
  Country: None (occurrence: None)
  Receive Date: 20120628
  Receipt Date: 20120619
  Transmission Date: 20120825
  Serious: Yes (Other)
  Sender: FDA-Public Use
  Company Number: US-ASTRAZENECA-2012SE41412

PATIENT
  Age: 68 Year
  Sex: Female

DRUGS (1)
  1. CRESTOR [Suspect]
     Route: 048
     Dates: end: 20110801

REACTIONS (5)
  - ADVERSE EVENT [None]
  - LOW DENSITY LIPOPROTEIN INCREASED [None]
  - RENAL FAILURE ACUTE [None]
  - THERAPY CESSATION [None]
  - MYALGIA [None]
